FAERS Safety Report 21716518 (Version 1)
Quarter: 2022Q4

REPORT INFORMATION
  Report Type: Spontaneous
  Country: US (occurrence: None)
  Receive Date: 20221209
  Receipt Date: 20221209
  Transmission Date: 20230113
  Serious: Yes (Other)
  Sender: FDA-Public Use
  Company Number: None

PATIENT
  Sex: Male

DRUGS (5)
  1. KOGENATE FS [Suspect]
     Active Substance: ANTIHEMOPHILIC FACTOR, HUMAN RECOMBINANT
     Indication: Factor VIII deficiency
     Dosage: 2000 UNIT ??KOGENATE 2054 UITS/VIAL, 5 VIALS, INFUSE ONE 2054 UNIT VIAL INTRAVENOUSLY ONCE DAILY TO
     Dates: start: 20221004
  2. CIALIS TAB [Concomitant]
  3. LOSARTAN/HCT TAB [Concomitant]
  4. SOD CHL FLSH [Concomitant]
  5. VYNASE CAP [Concomitant]

REACTIONS (3)
  - Skin laceration [None]
  - Wound [None]
  - Wound haemorrhage [None]
